FAERS Safety Report 4524481-8 (Version None)
Quarter: 2004Q4

REPORT INFORMATION
  Report Type: 
  Country: None (occurrence: None)
  Receive Date: 20041117
  Receipt Date: 20040224
  Transmission Date: 20050328
  Serious: Yes (Hospitalization)
  Sender: FDA-Public Use
  Company Number: US-JNJFOC-20031003146

PATIENT
  Age: 42 Year
  Sex: Female

DRUGS (7)
  1. LEVAQUIN [Suspect]
     Dates: start: 20030301
  2. AVONEX [Concomitant]
  3. ZOLOFT [Concomitant]
  4. ADVIL [Concomitant]
  5. MEDROL [Concomitant]
  6. ATARA (HYDROXYZINE HYDROCHLORIDE) [Concomitant]
  7. MACRODANTIN [Concomitant]

REACTIONS (1)
  - HEPATOTOXICITY [None]
